FAERS Safety Report 8998498 (Version 1)
Quarter: 2013Q1

REPORT INFORMATION
  Report Type: Spontaneous
  Country: US (occurrence: US)
  Receive Date: 20130103
  Receipt Date: 20130103
  Transmission Date: 20140127
  Serious: No
  Sender: FDA-Public Use
  Company Number: US-ASTRAZENECA-2012SE95570

PATIENT
  Age: 64 Year
  Sex: Female
  Weight: 54.4 kg

DRUGS (2)
  1. ARIMIDEX [Suspect]
     Indication: BREAST CANCER
     Route: 048
     Dates: start: 20120801, end: 20121123
  2. VITAMINS [Concomitant]

REACTIONS (9)
  - Vasodilatation [Recovering/Resolving]
  - Mood swings [Recovering/Resolving]
  - Hypertension [Recovering/Resolving]
  - Abdominal pain upper [Recovered/Resolved]
  - Dyspnoea exertional [Recovered/Resolved]
  - Listless [Recovering/Resolving]
  - Nausea [Recovered/Resolved]
  - Fatigue [Recovering/Resolving]
  - Hot flush [Recovering/Resolving]
